FAERS Safety Report 6803837-4 (Version None)
Quarter: 2010Q2

REPORT INFORMATION
  Report Type: 
  Country: None (occurrence: None)
  Receive Date: 20100628
  Receipt Date: 20100621
  Transmission Date: 20101027
  Serious: Yes (Hospitalization)
  Sender: FDA-Public Use
  Company Number: PHHO2010KR09433

PATIENT
  Sex: Male
  Weight: 54.8 kg

DRUGS (2)
  1. AFINITOR [Suspect]
     Indication: GASTRIC CANCER
     Dosage: 10 MG
     Route: 048
     Dates: start: 20100517
  2. XELODA [Suspect]
     Dosage: 2000 MG
     Dates: start: 20100517

REACTIONS (6)
  - HEADACHE [None]
  - LOBAR PNEUMONIA [None]
  - PULMONARY EMBOLISM [None]
  - PYREXIA [None]
  - SOMNOLENCE [None]
  - SPUTUM DISCOLOURED [None]
